FAERS Safety Report 17817407 (Version 1)
Quarter: 2020Q2

REPORT INFORMATION
  Report Type: Spontaneous
  Country: US (occurrence: US)
  Receive Date: 20200522
  Receipt Date: 20200522
  Transmission Date: 20200714
  Serious: Yes (Other)
  Sender: FDA-Public Use
  Company Number: US-FRESENIUS KABI-FK202005054

PATIENT
  Age: 4 Month
  Sex: Female

DRUGS (2)
  1. SMOFLIPID [Suspect]
     Active Substance: FISH OIL\MEDIUM-CHAIN TRIGLYCERIDES\OLIVE OIL\SOYBEAN OIL
     Indication: PARENTERAL NUTRITION
     Route: 065
     Dates: start: 20200512
  2. GLUCOSE [Concomitant]
     Active Substance: DEXTROSE
     Indication: PARENTERAL NUTRITION
     Dosage: UNKNOWN
     Route: 065

REACTIONS (4)
  - Renal disorder [Unknown]
  - Ischaemic hepatitis [Unknown]
  - Intentional product use issue [Unknown]
  - Liver function test increased [Recovering/Resolving]
